FAERS Safety Report 6475285-0 (Version None)
Quarter: 2009Q4

REPORT INFORMATION
  Report Type: 
  Country: None (occurrence: None)
  Receive Date: 20091204
  Receipt Date: 20090409
  Transmission Date: 20100525
  Serious: Yes (Other)
  Sender: FDA-Public Use
  Company Number: US-ELI_LILLY_AND_COMPANY-US200904002142

PATIENT
  Age: 23 Year
  Sex: Female

DRUGS (2)
  1. CYMBALTA [Suspect]
     Indication: ANXIETY
     Dosage: 60 MG, UNK
     Dates: start: 20080601, end: 20090201
  2. LORAZEPAM [Concomitant]
     Dosage: 1 MG, UNK

REACTIONS (2)
  - LOSS OF CONSCIOUSNESS [None]
  - PALPITATIONS [None]
